FAERS Safety Report 24572189 (Version 1)
Quarter: 2024Q4

REPORT INFORMATION
  Report Type: Spontaneous
  Country: AU (occurrence: AU)
  Receive Date: 20241101
  Receipt Date: 20241101
  Transmission Date: 20250115
  Serious: Yes (Death, Hospitalization, Other)
  Sender: UCB
  Company Number: AU-UCBSA-2024056287

PATIENT
  Age: 4 Decade
  Sex: Male

DRUGS (27)
  1. LACOSAMIDE [Suspect]
     Active Substance: LACOSAMIDE
     Indication: Febrile infection-related epilepsy syndrome
     Dosage: 200 MILLIGRAM, 2X/DAY (BID)
  2. LACOSAMIDE [Suspect]
     Active Substance: LACOSAMIDE
     Indication: Off label use
  3. LEVETIRACETAM [Suspect]
     Active Substance: LEVETIRACETAM
     Indication: Febrile infection-related epilepsy syndrome
     Dosage: 1500 MILLIGRAM, 2X/DAY (BID)
  4. LEVETIRACETAM [Suspect]
     Active Substance: LEVETIRACETAM
     Indication: Off label use
  5. MIDAZOLAM [Suspect]
     Active Substance: MIDAZOLAM
     Indication: Febrile infection-related epilepsy syndrome
     Dosage: UNK
  6. TOPIRAMATE [Suspect]
     Active Substance: TOPIRAMATE
     Indication: Febrile infection-related epilepsy syndrome
     Dosage: UNK
  7. TOPIRAMATE [Suspect]
     Active Substance: TOPIRAMATE
     Indication: Off label use
  8. CARBAMAZEPINE [Suspect]
     Active Substance: CARBAMAZEPINE
     Indication: Febrile infection-related epilepsy syndrome
     Dosage: UNK
  9. CLONAZEPAM [Suspect]
     Active Substance: CLONAZEPAM
     Indication: Febrile infection-related epilepsy syndrome
     Dosage: UNK
  10. IMMUNE GLOBULIN NOS [Suspect]
     Active Substance: IMMUNE GLOBULIN NOS
     Indication: Febrile infection-related epilepsy syndrome
     Dosage: UNK
     Route: 042
  11. METHYLPREDNISOLONE [Suspect]
     Active Substance: METHYLPREDNISOLONE
     Indication: Febrile infection-related epilepsy syndrome
     Dosage: UNK
  12. PHENOBARBITAL [Suspect]
     Active Substance: PHENOBARBITAL
     Indication: Febrile infection-related epilepsy syndrome
     Dosage: UNK
  13. PHENYTOIN [Suspect]
     Active Substance: PHENYTOIN
     Indication: Febrile infection-related epilepsy syndrome
     Dosage: UNK
  14. PROPOFOL [Suspect]
     Active Substance: PROPOFOL
     Indication: Febrile infection-related epilepsy syndrome
     Dosage: UNK
  15. VALPROATE SODIUM [Suspect]
     Active Substance: VALPROATE SODIUM
     Indication: Febrile infection-related epilepsy syndrome
     Dosage: UNK
  16. THIOPENTAL SODIUM [Suspect]
     Active Substance: THIOPENTAL SODIUM
     Indication: Febrile infection-related epilepsy syndrome
     Dosage: UNK
  17. ACETAZOLAMIDE [Concomitant]
     Active Substance: ACETAZOLAMIDE
     Indication: Febrile infection-related epilepsy syndrome
     Dosage: 500 MILLIGRAM, 3X/DAY (TID)
  18. ANAKINRA [Concomitant]
     Active Substance: ANAKINRA
     Indication: Haemophagocytic lymphohistiocytosis
     Dosage: UNK
  19. CLOBAZAM [Concomitant]
     Active Substance: CLOBAZAM
     Indication: Febrile infection-related epilepsy syndrome
     Dosage: 20 MILLIGRAM, 2X/2 DAYS
  20. DEXAMETHASONE [Concomitant]
     Active Substance: DEXAMETHASONE
     Indication: Chemotherapy
     Dosage: UNK
  21. ETOPOSIDE [Concomitant]
     Active Substance: ETOPOSIDE
     Indication: Chemotherapy
     Dosage: UNK, 2X/WEEK
  22. GABAPENTIN [Concomitant]
     Active Substance: GABAPENTIN
     Indication: Febrile infection-related epilepsy syndrome
     Dosage: 600 MILLIGRAM, 3X/DAY (TID)
  23. METHOTREXATE [Concomitant]
     Active Substance: METHOTREXATE
     Indication: Chemotherapy
     Dosage: UNK
  24. OXCARBAZEPINE [Concomitant]
     Active Substance: OXCARBAZEPINE
     Indication: Febrile infection-related epilepsy syndrome
     Dosage: 600 MG IN THE MORNING, 900 MG IN THE EVENING
  25. VIGABATRIN [Concomitant]
     Active Substance: VIGABATRIN
     Indication: Febrile infection-related epilepsy syndrome
     Dosage: UNK
  26. MEXILETINE [Concomitant]
     Active Substance: MEXILETINE
     Indication: Febrile infection-related epilepsy syndrome
     Dosage: 200 MILLIGRAM, 3X/DAY (TID)
  27. VIGABATRIN [Concomitant]
     Active Substance: VIGABATRIN
     Indication: Febrile infection-related epilepsy syndrome
     Dosage: 1 GRAM, 2X/DAY (BID)

REACTIONS (13)
  - Pneumonia aspiration [Fatal]
  - Seizure [Not Recovered/Not Resolved]
  - Generalised tonic-clonic seizure [Unknown]
  - Haemophagocytic lymphohistiocytosis [Unknown]
  - Hippocampal sclerosis [Unknown]
  - Hyperintensity in brain deep nuclei [Unknown]
  - Petechiae [Unknown]
  - Pyrexia [Unknown]
  - Cognitive disorder [Unknown]
  - Gait inability [Unknown]
  - Loss of personal independence in daily activities [Unknown]
  - Drug ineffective for unapproved indication [Unknown]
  - Off label use [Unknown]
